FAERS Safety Report 4443116-6 (Version None)
Quarter: 2004Q3

REPORT INFORMATION
  Report Type: 
  Country: None (occurrence: None)
  Receive Date: 20040903
  Receipt Date: 20040803
  Transmission Date: 20050211
  Serious: Yes (Other)
  Sender: FDA-Public Use
  Company Number: 2004UW16446

PATIENT
  Age: 69 Year
  Sex: Female
  Weight: 63.05 kg

DRUGS (9)
  1. CRESTOR [Suspect]
     Indication: BLOOD CHOLESTEROL INCREASED
     Dosage: 40 MG PO
     Route: 048
     Dates: start: 20040701
  2. TIMOLOL MALEATE [Concomitant]
  3. PREVACID [Concomitant]
  4. MIACALCIN [Concomitant]
  5. QUININE [Concomitant]
  6. ASPIRIN [Concomitant]
  7. CALCIUM [Concomitant]
  8. VIOXX [Concomitant]
  9. HYZAAR [Concomitant]

REACTIONS (1)
  - VISUAL DISTURBANCE [None]
